FAERS Safety Report 5235660-9 (Version None)
Quarter: 2007Q1

REPORT INFORMATION
  Report Type: 
  Country: None (occurrence: None)
  Receive Date: 20070212
  Receipt Date: 20070208
  Transmission Date: 20070707
  Serious: Yes (Death)
  Sender: FDA-Public Use
  Company Number: JP-JPN-A200700314

PATIENT
  Age: 30 Year
  Sex: Male
  Weight: 85 kg

DRUGS (8)
  1. PAXIL [Suspect]
     Indication: DEPRESSION
     Dosage: 10MG PER DAY
     Route: 048
     Dates: start: 20050301, end: 20050329
  2. HALOPERIDOL [Concomitant]
     Indication: PSYCHOTIC DISORDER
     Route: 048
     Dates: start: 20050301
  3. MYSLEE [Concomitant]
     Indication: INSOMNIA
     Dosage: 10MG PER DAY
     Route: 048
     Dates: start: 20050323
  4. MAGMITT [Concomitant]
     Indication: CONSTIPATION
     Dosage: 660MG PER DAY
     Route: 048
     Dates: start: 20040427
  5. DORAL [Concomitant]
     Indication: INSOMNIA
     Dosage: 15MG PER DAY
     Route: 048
     Dates: start: 20040608
  6. AKINETON [Concomitant]
     Dosage: 2MG PER DAY
     Dates: start: 20040511, end: 20050329
  7. SOLANAX [Concomitant]
     Indication: ANXIETY
     Dosage: .4MG PER DAY
     Route: 048
     Dates: start: 20040330, end: 20050329
  8. ANAFRANIL [Concomitant]
     Indication: DEPRESSION
     Dosage: 25MG PER DAY
     Route: 048
     Dates: start: 20040803, end: 20050301

REACTIONS (1)
  - COMPLETED SUICIDE [None]
